FAERS Safety Report 5939238-0 (Version None)
Quarter: 2008Q4

REPORT INFORMATION
  Report Type: 
  Country: None (occurrence: None)
  Receive Date: 20081103
  Receipt Date: 20081022
  Transmission Date: 20090506
  Serious: Yes (Other)
  Sender: FDA-Public Use
  Company Number: JP-PFIZER INC-2008088928

PATIENT
  Age: 24 Year
  Sex: Male

DRUGS (3)
  1. FLUCONAZOLE [Suspect]
     Indication: PNEUMONIA CRYPTOCOCCAL
     Dosage: DAILY DOSE:400MG
     Route: 048
  2. AMPHOTERICIN B [Concomitant]
  3. ITRACONAZOLE [Concomitant]

REACTIONS (2)
  - DRUG INEFFECTIVE [None]
  - PLEURISY [None]
